FAERS Safety Report 8275562-7 (Version None)
Quarter: 2012Q2

REPORT INFORMATION
  Report Type: 
  Country: None (occurrence: None)
  Receive Date: 20120412
  Receipt Date: 20120405
  Transmission Date: 20120825
  Serious: Yes (Other)
  Sender: FDA-Public Use
  Company Number: ES-BIOGENIDEC-2010BI015038

PATIENT
  Sex: Female

DRUGS (2)
  1. TYSABRI [Suspect]
     Route: 042
     Dates: end: 20110501
  2. TYSABRI [Suspect]
     Indication: MULTIPLE SCLEROSIS
     Route: 042
     Dates: end: 20100422

REACTIONS (3)
  - MULTIPLE SCLEROSIS RELAPSE [None]
  - SECONDARY PROGRESSIVE MULTIPLE SCLEROSIS [None]
  - TREATMENT FAILURE [None]
